FAERS Safety Report 11073965 (Version 1)
Quarter: 2015Q2

REPORT INFORMATION
  Report Type: Report from Study
  Country: CL (occurrence: CL)
  Receive Date: 20150429
  Receipt Date: 20150429
  Transmission Date: 20150821
  Serious: Yes (Other)
  Sender: FDA-Public Use
  Company Number: CL-ROCHE-1569447

PATIENT
  Age: 53 Year
  Sex: Female
  Weight: 75 kg

DRUGS (5)
  1. ACTEMRA [Suspect]
     Active Substance: TOCILIZUMAB
     Indication: RHEUMATOID ARTHRITIS
     Route: 042
     Dates: start: 20140319
  2. METHOTREXATE [Suspect]
     Active Substance: METHOTREXATE
     Indication: RHEUMATOID ARTHRITIS
     Route: 065
  3. TRAMADOL [Concomitant]
     Active Substance: TRAMADOL
  4. PARACETAMOL [Concomitant]
     Active Substance: ACETAMINOPHEN
  5. FOLIC ACID. [Concomitant]
     Active Substance: FOLIC ACID

REACTIONS (6)
  - Bronchitis [Recovered/Resolved]
  - Inflammation [Recovered/Resolved]
  - Pharyngitis [Recovered/Resolved]
  - Respiratory distress [Recovered/Resolved]
  - Drug dose omission [Unknown]
  - Immune system disorder [Recovered/Resolved]

NARRATIVE: CASE EVENT DATE: 201501
